FAERS Safety Report 10589533 (Version 1)
Quarter: 2014Q4

REPORT INFORMATION
  Report Type: Spontaneous
  Country: NL (occurrence: NL)
  Receive Date: 20141118
  Receipt Date: 20141118
  Transmission Date: 20150529
  Serious: Yes (Other)
  Sender: FDA-Public Use
  Company Number: NL-009507513-1411NLD006386

PATIENT
  Sex: Female

DRUGS (2)
  1. SELOKEEN [Concomitant]
     Active Substance: METOPROLOL
     Dosage: UNK
  2. SIMVASTATIN. [Suspect]
     Active Substance: SIMVASTATIN
     Dosage: UNK
     Route: 048
     Dates: start: 2012

REACTIONS (1)
  - Adverse event [Unknown]
